FAERS Safety Report 20633027 (Version 5)
Quarter: 2022Q2

REPORT INFORMATION
  Report Type: Report from Study
  Country: JP (occurrence: JP)
  Receive Date: 20220324
  Receipt Date: 20220524
  Transmission Date: 20220721
  Serious: Yes (Hospitalization)
  Sender: FDA-Public Use
  Company Number: JP-PFIZER INC-202200412094

PATIENT
  Age: 86 Year
  Sex: Female
  Weight: 40 kg

DRUGS (20)
  1. GLASDEGIB [Suspect]
     Active Substance: GLASDEGIB
     Indication: Acute myeloid leukaemia
     Dosage: 100 MG, 1X/DAY
     Route: 048
     Dates: start: 20190327, end: 20190408
  2. GLASDEGIB [Suspect]
     Active Substance: GLASDEGIB
     Dosage: 100 MG, 1X/DAY
     Route: 048
     Dates: start: 20190425, end: 20200717
  3. GLASDEGIB [Suspect]
     Active Substance: GLASDEGIB
     Dosage: 100 MG, 1X/DAY
     Route: 048
     Dates: start: 20190720, end: 20200108
  4. GLASDEGIB [Suspect]
     Active Substance: GLASDEGIB
     Dosage: 100 MG, 1X/DAY
     Route: 048
     Dates: start: 20200123, end: 20220301
  5. CYTARABINE [Suspect]
     Active Substance: CYTARABINE
     Indication: Acute myeloid leukaemia
     Dosage: 20 MG, 2X/DAY
     Route: 058
     Dates: start: 20190327, end: 20191002
  6. CYTARABINE [Suspect]
     Active Substance: CYTARABINE
     Dosage: 15 MG, 2X/DAY
     Route: 058
     Dates: start: 20191023, end: 20191028
  7. CYTARABINE [Suspect]
     Active Substance: CYTARABINE
     Dosage: 10 MG, 2X/DAY
     Route: 058
     Dates: start: 20191120, end: 20191226
  8. CYTARABINE [Suspect]
     Active Substance: CYTARABINE
     Dosage: 10 MG, 2X/DAY
     Route: 058
     Dates: start: 20200123, end: 20220301
  9. PREDNISOLONE [Suspect]
     Active Substance: PREDNISOLONE
     Indication: Polymyalgia rheumatica
     Dosage: 7.5 MG, 1X/DAY, TABLET
     Dates: start: 20190201
  10. EDOXABAN TOSYLATE [Suspect]
     Active Substance: EDOXABAN TOSYLATE
     Indication: Thrombosis prophylaxis
     Dosage: 30 MG, 1X/DAY, TABLET
     Route: 048
     Dates: start: 20200121, end: 20220314
  11. CIFENLINE [Concomitant]
     Active Substance: CIFENLINE
     Indication: Atrial fibrillation
     Dosage: 50 MG, 2X/DAY
     Route: 048
     Dates: start: 20200119
  12. BISOPROLOL FUMARATE [Concomitant]
     Active Substance: BISOPROLOL FUMARATE
     Indication: Atrial fibrillation
     Dosage: 1.25 MG, 1X/DAY
     Route: 048
     Dates: start: 20200119
  13. REBAMIPIDE [Concomitant]
     Active Substance: REBAMIPIDE
     Indication: Prophylaxis against gastrointestinal ulcer
     Dosage: 100 MG, 2X/DAY
     Dates: start: 20190729
  14. SULFAMETHOXAZOLE\TRIMETHOPRIM [Concomitant]
     Active Substance: SULFAMETHOXAZOLE\TRIMETHOPRIM
     Indication: Infection prophylaxis
     Dosage: 2 TABLETS, 2X/DAY
     Route: 048
     Dates: start: 20200907
  15. AMLODIPINE BESYLATE [Concomitant]
     Active Substance: AMLODIPINE BESYLATE
     Indication: Hypertension
     Dosage: 2.5 MG, 1X/DAY
     Route: 048
     Dates: start: 20200318
  16. MIYABM [Concomitant]
     Indication: Prophylaxis against diarrhoea
     Dosage: 1 TABLET, 3X/DAY
     Route: 048
     Dates: start: 20200902
  17. LEVOFLOXACIN [Concomitant]
     Active Substance: LEVOFLOXACIN
     Indication: Infection prophylaxis
     Dosage: 250 MG, 1X/DAY
     Route: 048
     Dates: start: 20211218
  18. HYALURONATE SODIUM [Concomitant]
     Active Substance: HYALURONATE SODIUM
     Indication: Prophylaxis
     Dosage: 1 DROP, AS NEEDED
     Route: 047
     Dates: start: 20210914
  19. POTASSIUM CHLORIDE [Concomitant]
     Active Substance: POTASSIUM CHLORIDE
     Indication: Hypokalaemia
     Dosage: 600 MG, 2X/DAY
     Route: 048
     Dates: start: 20220310
  20. ZOSYN [Concomitant]
     Active Substance: PIPERACILLIN SODIUM\TAZOBACTAM SODIUM
     Indication: Pneumonia
     Dosage: 4.5 G, 3X/DAY, INJECTION
     Dates: start: 20220301, end: 20220311

REACTIONS (1)
  - Gastric ulcer haemorrhage [Recovered/Resolved]

NARRATIVE: CASE EVENT DATE: 20220313
